FAERS Safety Report 10739720 (Version 1)
Quarter: 2015Q1

REPORT INFORMATION
  Report Type: Spontaneous
  Country: PT (occurrence: PT)
  Receive Date: 20150127
  Receipt Date: 20150127
  Transmission Date: 20150721
  Serious: Yes (Hospitalization)
  Sender: FDA-Public Use
  Company Number: PT-AMGEN-PRTSP2015006543

PATIENT
  Age: 65 Year
  Sex: Female

DRUGS (1)
  1. ENBREL [Suspect]
     Active Substance: ETANERCEPT
     Indication: PSORIATIC ARTHROPATHY
     Dosage: 50 MG, WEEKLY
     Route: 058
     Dates: start: 201411

REACTIONS (5)
  - Pain [Unknown]
  - Visual impairment [Unknown]
  - Speech disorder [Unknown]
  - Memory impairment [Unknown]
  - Fatigue [Unknown]
